FAERS Safety Report 19567853 (Version 3)
Quarter: 2021Q3

REPORT INFORMATION
  Report Type: Report from Study
  Country: IT (occurrence: IT)
  Receive Date: 20210715
  Receipt Date: 20210728
  Transmission Date: 20211014
  Serious: Yes (Death)
  Sender: FDA-Public Use
  Company Number: IT-PFIZER INC-2021840919

PATIENT

DRUGS (7)
  1. CISPLATIN. [Suspect]
     Active Substance: CISPLATIN
     Dosage: 120 MG/M2, CYCLIC
     Route: 042
  2. DOXORUBICIN HCL [Suspect]
     Active Substance: DOXORUBICIN HYDROCHLORIDE
     Dosage: 90 MG/M2, CYCLIC
     Route: 042
  3. CISPLATIN. [Suspect]
     Active Substance: CISPLATIN
     Indication: OSTEOSARCOMA
     Dosage: 120 MG/M2 (DELIVERED IN A 72?HR CONTINUOUS INFUSION)
     Route: 042
  4. DOXORUBICIN HCL [Suspect]
     Active Substance: DOXORUBICIN HYDROCHLORIDE
     Indication: OSTEOSARCOMA
     Dosage: 60 MG/M2, CYCLIC (IN AN 8?HRINFUSION STARTING 48 HR AFTER THE BEGINNING OF CDP INFUSION)
     Route: 042
  5. METHOTREXATE. [Suspect]
     Active Substance: METHOTREXATE
     Dosage: 8 G/M2, CYCLIC
     Route: 042
  6. METHOTREXATE. [Suspect]
     Active Substance: METHOTREXATE
     Indication: OSTEOSARCOMA
     Dosage: 10 G/M 2 (TOP DOSE OF 20 G) OVER A 6?HR INTRAVENOUS INFUSION
     Route: 042
  7. LEUCOVORINE [Concomitant]
     Active Substance: LEUCOVORIN
     Indication: OSTEOSARCOMA
     Dosage: 15 MG, CYCLIC (EVERY 6 HRS) WAS TO BEGIN 24 HR AFTER THE START OF MTX INFUSION, TOTAL OF 11 DOSES)

REACTIONS (1)
  - Cardiac failure [Fatal]
